FAERS Safety Report 13351167 (Version 1)
Quarter: 2017Q1

REPORT INFORMATION
  Report Type: Report from Study
  Country: VE (occurrence: VE)
  Receive Date: 20170320
  Receipt Date: 20170320
  Transmission Date: 20170429
  Serious: Yes (Death)
  Sender: FDA-Public Use
  Company Number: PHHY2017VE041537

PATIENT
  Age: 59 Year
  Sex: Male

DRUGS (1)
  1. EXJADE [Suspect]
     Active Substance: DEFERASIROX
     Indication: MYELODYSPLASTIC SYNDROME
     Dosage: 500 MG, QD
     Route: 048
     Dates: start: 20150807

REACTIONS (3)
  - Haemoglobin decreased [Unknown]
  - Myelodysplastic syndrome [Fatal]
  - Malnutrition [Fatal]

NARRATIVE: CASE EVENT DATE: 201606
